FAERS Safety Report 6069114-7 (Version None)
Quarter: 2009Q1

REPORT INFORMATION
  Report Type: 
  Country: None (occurrence: None)
  Receive Date: 20090203
  Receipt Date: 20080923
  Transmission Date: 20090719
  Serious: Yes (Hospitalization)
  Sender: FDA-Public Use
  Company Number: 2008EU002128

PATIENT
  Age: 41 Year
  Sex: Male

DRUGS (9)
  1. PROGRAF [Suspect]
     Indication: RENAL TRANSPLANT
     Dosage: 10 MG
  2. MYCOPHENOLATE MOFETIL [Suspect]
     Indication: RENAL TRANSPLANT
  3. PREDNISONE TAB [Suspect]
     Indication: TRANSPLANT
     Dosage: 15 MG, UID/QD
  4. COTRIMOXAZOLE         (SULFAMETHOXALE, TRIMTHOPRIM) [Suspect]
  5. VALGANCICLOVIR HCL [Suspect]
  6. ATG RABBIT (ANTITHYMOCYTE IMMUNOGLOBULIN) [Concomitant]
  7. VANCOMYCIN HYDROCHLORIDE [Concomitant]
  8. CEFOTAXIME SODIUM [Concomitant]
  9. FLUCONAZOLE [Concomitant]

REACTIONS (19)
  - ANAEMIA [None]
  - BLOOD CULTURE POSITIVE [None]
  - BLOOD LACTATE DEHYDROGENASE INCREASED [None]
  - CANDIDIASIS [None]
  - GENERAL PHYSICAL HEALTH DETERIORATION [None]
  - GRANULOCYTOPENIA [None]
  - HEPATIC ENZYME INCREASED [None]
  - HISTIOCYTOSIS HAEMATOPHAGIC [None]
  - HYPERBILIRUBINAEMIA [None]
  - HYPERTRIGLYCERIDAEMIA [None]
  - KIDNEY TRANSPLANT REJECTION [None]
  - NEUTROPHILIA [None]
  - PERIPANCREATIC FLUID COLLECTION [None]
  - PSEUDOMONAS INFECTION [None]
  - PURULENCE [None]
  - PYREXIA [None]
  - RASH [None]
  - SERUM FERRITIN INCREASED [None]
  - THROMBOCYTOPENIA [None]
